FAERS Safety Report 8815841 (Version 1)
Quarter: 2012Q4

REPORT INFORMATION
  Report Type: 
  Country: US (occurrence: US)
  Receive Date: 20120928
  Receipt Date: 20120928
  Transmission Date: 20130627
  Serious: Yes (Other)
  Sender: FDA-Public Use
  Company Number: US-ASTRAZENECA-2012SE73255

PATIENT
  Age: 53 Year
  Sex: Female

DRUGS (2)
  1. CRESTOR [Suspect]
     Route: 048
  2. TOPROL XL [Suspect]
     Route: 048

REACTIONS (5)
  - Fall [Unknown]
  - Pelvic fracture [Unknown]
  - Sarcoidosis [Unknown]
  - Memory impairment [Unknown]
  - Blood triglycerides increased [Unknown]
